FAERS Safety Report 22219108 (Version 1)
Quarter: 2023Q2

REPORT INFORMATION
  Report Type: Report from Study
  Country: US (occurrence: US)
  Receive Date: 20230417
  Receipt Date: 20230417
  Transmission Date: 20230721
  Serious: Yes (Other)
  Sender: FDA-Public Use
  Company Number: US-MYLANLABS-2023M1024041

PATIENT
  Sex: Male

DRUGS (1)
  1. AMNESTEEM [Suspect]
     Active Substance: ISOTRETINOIN
     Indication: Product used for unknown indication
     Dosage: 40 MILLIGRAM
     Route: 065
     Dates: start: 202209, end: 202301

REACTIONS (5)
  - Gastrointestinal pain [Unknown]
  - Abdominal pain upper [Unknown]
  - Anxiety [Unknown]
  - Headache [Unknown]
  - Depression [Unknown]
